FAERS Safety Report 4915738-7 (Version None)
Quarter: 2006Q1

REPORT INFORMATION
  Report Type: 
  Country: None (occurrence: None)
  Receive Date: 20060217
  Receipt Date: 20060209
  Transmission Date: 20060701
  Serious: Yes (Hospitalization)
  Sender: FDA-Public Use
  Company Number: US-JNJFOC-20060203343

PATIENT
  Sex: Male
  Weight: 99.34 kg

DRUGS (4)
  1. DURAGESIC-100 [Suspect]
  2. PROTONIX [Concomitant]
     Route: 048
  3. PERCOCET [Concomitant]
     Route: 048
  4. PERCOCET [Concomitant]
     Indication: THERAPEUTIC RESPONSE DECREASED
     Route: 048

REACTIONS (4)
  - DEHYDRATION [None]
  - DEPENDENCE [None]
  - FEELING JITTERY [None]
  - MALAISE [None]
